FAERS Safety Report 11798369 (Version 2)
Quarter: 2016Q3

REPORT INFORMATION
  Report Type: Report from Study
  Country: VE (occurrence: VE)
  Receive Date: 20151203
  Receipt Date: 20160701
  Transmission Date: 20161109
  Serious: Yes (Hospitalization)
  Sender: FDA-Public Use
  Company Number: PHHY2015VE125361

PATIENT
  Age: 52 Year
  Sex: Female

DRUGS (2)
  1. AFINITOR [Suspect]
     Active Substance: EVEROLIMUS
     Indication: BREAST CANCER
     Dosage: 10 MG, QD
     Route: 048
     Dates: start: 20151011
  2. COAPROVEL [Concomitant]
     Active Substance: HYDROCHLOROTHIAZIDE\IRBESARTAN
     Indication: BLOOD PRESSURE ABNORMAL
     Dosage: 150 MG, UNK
     Route: 065

REACTIONS (11)
  - Nervousness [Unknown]
  - Pain [Unknown]
  - Malaise [Recovered/Resolved]
  - Haemorrhoids [Unknown]
  - Mouth ulceration [Recovering/Resolving]
  - Drug ineffective [Unknown]
  - Mouth ulceration [Recovered/Resolved]
  - Malaise [Recovering/Resolving]
  - Gait disturbance [Recovering/Resolving]
  - Bone pain [Recovering/Resolving]
  - Asthenia [Recovering/Resolving]

NARRATIVE: CASE EVENT DATE: 20151013
